FAERS Safety Report 15953962 (Version 1)
Quarter: 2019Q1

REPORT INFORMATION
  Report Type: Spontaneous
  Country: GB (occurrence: GB)
  Receive Date: 20190212
  Receipt Date: 20190212
  Transmission Date: 20190417
  Serious: Yes (Hospitalization, Disabling, Other)
  Sender: FDA-Public Use
  Company Number: GB-MYLANLABS-2019M1011716

PATIENT
  Age: 16 Year
  Sex: Female

DRUGS (1)
  1. QUININE [Suspect]
     Active Substance: QUININE
     Indication: PRODUCT USED FOR UNKNOWN INDICATION
     Dosage: UNK
     Route: 048

REACTIONS (10)
  - Intentional overdose [Unknown]
  - Intentional product misuse [Unknown]
  - Visual impairment [Not Recovered/Not Resolved]
  - Mydriasis [Not Recovered/Not Resolved]
  - Tachycardia [Recovering/Resolving]
  - Hypotension [Recovering/Resolving]
  - Metabolic acidosis [Recovering/Resolving]
  - Drug abuse [Unknown]
  - Blindness [Not Recovered/Not Resolved]
  - Toxicity to various agents [Recovering/Resolving]
